FAERS Safety Report 12755643 (Version 1)
Quarter: 2016Q3

REPORT INFORMATION
  Report Type: Spontaneous
  Country: US (occurrence: US)
  Receive Date: 20160916
  Receipt Date: 20160916
  Transmission Date: 20161109
  Serious: No
  Sender: FDA-Public Use
  Company Number: US-BAYER-2016-170753

PATIENT
  Age: 75 Year
  Sex: Female
  Weight: 113.38 kg

DRUGS (1)
  1. MIRALAX [Suspect]
     Active Substance: POLYETHYLENE GLYCOL 3350
     Dosage: 1 DF, UNK

REACTIONS (6)
  - Muscle strain [None]
  - Abnormal faeces [None]
  - Groin pain [None]
  - Product use issue [None]
  - Back pain [None]
  - Drug effect incomplete [None]
